FAERS Safety Report 4383305-2 (Version None)
Quarter: 2004Q2

REPORT INFORMATION
  Report Type: 
  Country: None (occurrence: None)
  Receive Date: 20040618
  Receipt Date: 20040601
  Transmission Date: 20050107
  Serious: Yes (Death)
  Sender: FDA-Public Use
  Company Number: GBS040514880

PATIENT
  Age: 35 Year
  Sex: Male
  Weight: 60 kg

DRUGS (11)
  1. XIGRIS [Suspect]
     Indication: NEUTROPENIC SEPSIS
     Dates: start: 20040502, end: 20040505
  2. TAZOCIN [Concomitant]
  3. PABRINEX [Concomitant]
  4. OMEPRAZOLE [Concomitant]
  5. HYDROCORTISONE [Concomitant]
  6. CEFTAZIDIME [Concomitant]
  7. ADRENALIN IN OIL INJ [Concomitant]
  8. NORADRENALINE [Concomitant]
  9. PROPOFOL [Concomitant]
  10. ALFENTANIL [Concomitant]
  11. ARGIPRESSIN [Concomitant]

REACTIONS (4)
  - BACTERIA BLOOD IDENTIFIED [None]
  - CEREBRAL HAEMORRHAGE [None]
  - HEPATIC FAILURE [None]
  - MULTI-ORGAN FAILURE [None]
